FAERS Safety Report 20137077 (Version 2)
Quarter: 2022Q1

REPORT INFORMATION
  Report Type: Spontaneous
  Country: US (occurrence: US)
  Receive Date: 20211201
  Receipt Date: 20220112
  Transmission Date: 20220423
  Serious: No
  Sender: FDA-Public Use
  Company Number: US-Vifor (International) Inc.-VIT-2021-08965

PATIENT
  Sex: Female

DRUGS (2)
  1. VELTASSA [Suspect]
     Active Substance: PATIROMER
     Indication: Hyperkalaemia
     Route: 048
     Dates: start: 20190508
  2. VELTASSA [Suspect]
     Active Substance: PATIROMER
     Indication: End stage renal disease
     Route: 048

REACTIONS (2)
  - Blood potassium increased [Unknown]
  - Off label use [Unknown]
